FAERS Safety Report 25336530 (Version 1)
Quarter: 2025Q2

REPORT INFORMATION
  Report Type: Spontaneous
  Country: US (occurrence: US)
  Receive Date: 20250520
  Receipt Date: 20250520
  Transmission Date: 20250717
  Serious: Yes (Hospitalization, Other)
  Sender: MEITHEAL PHARMACEUTICALS
  Company Number: US-MEITHEAL-2025MPLIT00200

PATIENT
  Age: 48 Year
  Sex: Female

DRUGS (3)
  1. CYTARABINE [Suspect]
     Active Substance: CYTARABINE
     Indication: Mantle cell lymphoma
     Route: 065
  2. CISPLATIN [Suspect]
     Active Substance: CISPLATIN
     Indication: Mantle cell lymphoma
  3. ALLOPURINOL [Suspect]
     Active Substance: ALLOPURINOL
     Indication: Mantle cell lymphoma
     Route: 065

REACTIONS (2)
  - Stevens-Johnson syndrome [Unknown]
  - Charles Bonnet syndrome [Recovering/Resolving]
